FAERS Safety Report 16556459 (Version 2)
Quarter: 2019Q3

REPORT INFORMATION
  Report Type: Spontaneous
  Country: NL (occurrence: NL)
  Receive Date: 20190710
  Receipt Date: 20190911
  Transmission Date: 20191004
  Serious: Yes (Other)
  Sender: FDA-Public Use
  Company Number: NL-BIOGEN-2019BI00760919

PATIENT
  Age: 45 Year
  Sex: Female

DRUGS (3)
  1. ZINBRYTA [Suspect]
     Active Substance: DACLIZUMAB
     Dosage: 4TH INJECTION
     Route: 058
     Dates: start: 201710
  2. ZINBRYTA [Suspect]
     Active Substance: DACLIZUMAB
     Dosage: 5TH INJECTION
     Route: 058
     Dates: start: 20171117
  3. ZINBRYTA [Suspect]
     Active Substance: DACLIZUMAB
     Indication: RELAPSING-REMITTING MULTIPLE SCLEROSIS
     Route: 058
     Dates: start: 201707

REACTIONS (1)
  - Perivascular dermatitis [Recovered/Resolved]

NARRATIVE: CASE EVENT DATE: 201711
